FAERS Safety Report 7470715-X (Version None)
Quarter: 2011Q2

REPORT INFORMATION
  Report Type: 
  Country: None (occurrence: None)
  Receive Date: 20110510
  Receipt Date: 20110427
  Transmission Date: 20111010
  Serious: Yes (Hospitalization)
  Sender: FDA-Public Use
  Company Number: PHHY2011FR35908

PATIENT
  Age: 62 Year
  Sex: Female

DRUGS (2)
  1. ZOMETA [Suspect]
     Dosage: UNK
     Dates: start: 20110330
  2. ZOMETA [Suspect]
     Indication: METASTASES TO BONE
     Dosage: UNK

REACTIONS (1)
  - OSTEONECROSIS OF JAW [None]
